FAERS Safety Report 19502386 (Version 3)
Quarter: 2021Q3

REPORT INFORMATION
  Report Type: Other
  Country: US (occurrence: US)
  Receive Date: 20210707
  Receipt Date: 20210816
  Transmission Date: 20211014
  Serious: Yes (Other)
  Sender: FDA-Public Use
  Company Number: US-ROCHE-2815418

PATIENT
  Age: 80 Year
  Sex: Female
  Weight: 39.5 kg

DRUGS (3)
  1. TIROSINT [Concomitant]
     Active Substance: LEVOTHYROXINE SODIUM
  2. ESBRIET [Suspect]
     Active Substance: PIRFENIDONE
     Indication: IDIOPATHIC PULMONARY FIBROSIS
     Dosage: A DOSE OF 267 MG THREE TIMES A DAY FOR A WEEK FOLLOWED BY 2 TABLETS THRICE A DAY FOR 1 WEEK AND 3 TA
     Route: 048
     Dates: start: 20210404, end: 20210415
  3. ESBRIET [Suspect]
     Active Substance: PIRFENIDONE
     Indication: SCLERODERMA
     Route: 048
     Dates: start: 20210604, end: 20210614

REACTIONS (7)
  - Vomiting [Unknown]
  - Nausea [Unknown]
  - Thyroid disorder [Unknown]
  - Neutropenia [Recovered/Resolved]
  - Vision blurred [Unknown]
  - Fatigue [Unknown]
  - Gait disturbance [Unknown]

NARRATIVE: CASE EVENT DATE: 20210623
